FAERS Safety Report 6843886-3 (Version None)
Quarter: 2010Q3

REPORT INFORMATION
  Report Type: 
  Country: None (occurrence: None)
  Receive Date: 20100714
  Receipt Date: 20100714
  Transmission Date: 20110219
  Serious: Yes (Life-Threatening, Hospitalization, Disabling)
  Sender: FDA-Public Use
  Company Number: None

PATIENT
  Age: 73 Year
  Sex: Male
  Weight: 102.0593 kg

DRUGS (1)
  1. AVANDAMET [Suspect]
     Dosage: 1000 MG -EST'D- DAILY

REACTIONS (1)
  - CARDIAC DISORDER [None]
